FAERS Safety Report 4976078-3 (Version None)
Quarter: 2006Q2

REPORT INFORMATION
  Report Type: 
  Country: None (occurrence: None)
  Receive Date: 20060411
  Receipt Date: 20060403
  Transmission Date: 20061013
  Serious: Yes (Hospitalization, Other)
  Sender: FDA-Public Use
  Company Number: 2006046267

PATIENT
  Sex: Male
  Weight: 108.8633 kg

DRUGS (3)
  1. LIPITOR [Suspect]
     Indication: BLOOD CHOLESTEROL INCREASED
     Dosage: 10 MG (10 MG, 1 IN 1 D)
  2. VITAMINS (VITAMINS) [Concomitant]
  3. ZESTRIL [Concomitant]

REACTIONS (10)
  - CAROTID ARTERY OCCLUSION [None]
  - CHOLELITHIASIS [None]
  - DRUG INEFFECTIVE [None]
  - EYE DISORDER [None]
  - FATIGUE [None]
  - GASTROOESOPHAGEAL REFLUX DISEASE [None]
  - INTRAOCULAR PRESSURE INCREASED [None]
  - MUSCLE SPASMS [None]
  - MYALGIA [None]
  - STRESS [None]
